FAERS Safety Report 8859502 (Version 2)
Quarter: 2012Q4

REPORT INFORMATION
  Report Type: 
  Country: JP (occurrence: JP)
  Receive Date: 20121024
  Receipt Date: 20121112
  Transmission Date: 20130627
  Serious: Yes (Hospitalization)
  Sender: FDA-Public Use
  Company Number: JP-ROCHE-1148588

PATIENT
  Age: 72 Year
  Sex: Male

DRUGS (4)
  1. XELODA [Suspect]
     Indication: RECTOSIGMOID CANCER METASTATIC
     Dosage: Dosage is uncertain.
     Route: 048
     Dates: start: 20121017
  2. AVASTIN [Suspect]
     Indication: RECTOSIGMOID CANCER METASTATIC
     Route: 041
     Dates: start: 20121017, end: 20121017
  3. ELPLAT [Concomitant]
     Indication: RECTOSIGMOID CANCER METASTATIC
     Dosage: Dosage is uncertain.
     Route: 041
     Dates: start: 20121017, end: 20121017
  4. METFORMIN HYDROCHLORIDE [Concomitant]
     Dosage: Drug reported as : Metgluco
     Route: 065

REACTIONS (2)
  - Hyperthermia malignant [Unknown]
  - Rhabdomyolysis [Unknown]
